FAERS Safety Report 7775599-8 (Version None)
Quarter: 2011Q3

REPORT INFORMATION
  Report Type: 
  Country: None (occurrence: None)
  Receive Date: 20110923
  Receipt Date: 20110916
  Transmission Date: 20111222
  Serious: Yes (Hospitalization)
  Sender: FDA-Public Use
  Company Number: US-GENZYME-RENA-1001324

PATIENT
  Age: 81 Year
  Sex: Male

DRUGS (2)
  1. RENVELA [Suspect]
     Indication: HYPERPHOSPHATAEMIA
     Dosage: 3.2 G, TID
     Route: 048
     Dates: start: 20090101, end: 20110805
  2. RENVELA [Suspect]
     Dosage: UNK
     Route: 048
     Dates: start: 20110805

REACTIONS (1)
  - HOSPITALISATION [None]
